FAERS Safety Report 9908173 (Version 1)
Quarter: 2013Q2

REPORT INFORMATION
  Report Type: Spontaneous
  Country: US (occurrence: None)
  Receive Date: 20130305
  Receipt Date: 20130305
  Transmission Date: 20140414
  Serious: Yes (Life-Threatening, Hospitalization)
  Sender: FDA-Public Use
  Company Number: 163-21880-12071423

PATIENT
  Age: 74 Year
  Sex: Male

DRUGS (14)
  1. REVLIMID (LENALIDOMIDE) (CAPSULES) [Suspect]
     Indication: PLASMA CELL MYELOMA
     Dosage: 25 MG, 14 IN 14 D, PO
     Route: 048
     Dates: start: 20120626
  2. LOVENOX (HEPARIN-FRACTION, SODIUM SALT) (UNKNOWN) [Concomitant]
  3. ZOVIRAX (ACICLOVIR) (TABLETS) [Concomitant]
  4. LORTAB (VICODIN) (TABLETS) [Concomitant]
  5. HYDROCORTISONE (HYDROCORTISONE) (CREAM) [Concomitant]
  6. MS CONTIN (MORPHINE SULFATE) (TABLETS) [Concomitant]
  7. MULTIVITIAMINS (MULTIVITAMINS) (TABLETS) [Concomitant]
  8. ZOFRAN (ONDANSETRON HYDROCHLORIDE) (TABLETS) [Concomitant]
  9. BETAPACE (SOTALOL HYDROCHLORIDE) (TABLETS) [Concomitant]
  10. FLOMAX (TAMSULOSIN HYDROCHLORIDE) (CAPSULES) [Concomitant]
  11. TIMOPTIC (TIMOLOL MALEATE) (SOLUTION) [Concomitant]
  12. ULTRAM (TRAMADOL HYDROCHLORIDE) (TABLETS) [Concomitant]
  13. COUMADIN (WARFARIN SODIUM) (TABLETS) [Concomitant]
  14. GLYCOLAX (MACROGOL) (UNKNOWN) [Concomitant]

REACTIONS (2)
  - Pneumonia [None]
  - Sepsis [None]
